FAERS Safety Report 6928481-X (Version None)
Quarter: 2010Q3

REPORT INFORMATION
  Report Type: 
  Country: None (occurrence: None)
  Receive Date: 20100817
  Receipt Date: 20100805
  Transmission Date: 20110219
  Serious: Yes (Other)
  Sender: FDA-Public Use
  Company Number: JM-WYE-H16791210

PATIENT
  Age: 35 Year
  Sex: Male

DRUGS (1)
  1. PANTECTA [Suspect]
     Indication: GASTRITIS
     Route: 048
     Dates: start: 20100723

REACTIONS (4)
  - NAUSEA [None]
  - RASH GENERALISED [None]
  - RESPIRATORY DISTRESS [None]
  - WHEEZING [None]
